FAERS Safety Report 24335576 (Version 3)
Quarter: 2024Q4

REPORT INFORMATION
  Report Type: Spontaneous
  Country: CA (occurrence: CA)
  Receive Date: 20240919
  Receipt Date: 20241210
  Transmission Date: 20250114
  Serious: Yes (Other)
  Sender: Haleon PLC
  Company Number: CA-002147023-NVSC2020CA102759

PATIENT
  Age: 53 Year
  Sex: Male

DRUGS (533)
  1. VOLTAREN [Suspect]
     Active Substance: DICLOFENAC SODIUM
     Indication: Migraine
     Route: 065
  2. VOLTAREN [Suspect]
     Active Substance: DICLOFENAC SODIUM
     Indication: Arthralgia
  3. ESOMEPRAZOLE MAGNESIUM [Suspect]
     Active Substance: ESOMEPRAZOLE MAGNESIUM
     Indication: Product used for unknown indication
     Route: 048
  4. ONDANSETRON HYDROCHLORIDE [Suspect]
     Active Substance: ONDANSETRON HYDROCHLORIDE
     Indication: Migraine
     Route: 065
  5. ONDANSETRON HYDROCHLORIDE [Suspect]
     Active Substance: ONDANSETRON HYDROCHLORIDE
     Route: 065
  6. ONDANSETRON HYDROCHLORIDE [Suspect]
     Active Substance: ONDANSETRON HYDROCHLORIDE
     Route: 065
  7. ONDANSETRON HYDROCHLORIDE [Suspect]
     Active Substance: ONDANSETRON HYDROCHLORIDE
     Route: 043
  8. MAXALT [Suspect]
     Active Substance: RIZATRIPTAN BENZOATE
     Indication: Product used for unknown indication
     Route: 065
  9. MAXALT [Suspect]
     Active Substance: RIZATRIPTAN BENZOATE
     Route: 065
  10. DEMEROL [Suspect]
     Active Substance: MEPERIDINE HYDROCHLORIDE
     Indication: Product used for unknown indication
     Route: 065
  11. DEMEROL [Suspect]
     Active Substance: MEPERIDINE HYDROCHLORIDE
     Route: 065
  12. DEMEROL [Suspect]
     Active Substance: MEPERIDINE HYDROCHLORIDE
     Route: 065
  13. DEMEROL [Suspect]
     Active Substance: MEPERIDINE HYDROCHLORIDE
     Route: 065
  14. DEMEROL [Suspect]
     Active Substance: MEPERIDINE HYDROCHLORIDE
     Route: 065
  15. DEMEROL [Suspect]
     Active Substance: MEPERIDINE HYDROCHLORIDE
     Route: 065
  16. DEMEROL [Suspect]
     Active Substance: MEPERIDINE HYDROCHLORIDE
     Route: 065
  17. DEMEROL [Suspect]
     Active Substance: MEPERIDINE HYDROCHLORIDE
     Route: 065
  18. DEMEROL [Suspect]
     Active Substance: MEPERIDINE HYDROCHLORIDE
     Route: 065
  19. DEMEROL [Suspect]
     Active Substance: MEPERIDINE HYDROCHLORIDE
     Route: 065
  20. DEMEROL [Suspect]
     Active Substance: MEPERIDINE HYDROCHLORIDE
     Route: 065
  21. DEMEROL [Suspect]
     Active Substance: MEPERIDINE HYDROCHLORIDE
     Route: 065
  22. DEMEROL [Suspect]
     Active Substance: MEPERIDINE HYDROCHLORIDE
     Route: 065
  23. DEMEROL [Suspect]
     Active Substance: MEPERIDINE HYDROCHLORIDE
     Route: 065
  24. DEMEROL [Suspect]
     Active Substance: MEPERIDINE HYDROCHLORIDE
     Route: 065
  25. DEMEROL [Suspect]
     Active Substance: MEPERIDINE HYDROCHLORIDE
     Route: 065
  26. DEMEROL [Suspect]
     Active Substance: MEPERIDINE HYDROCHLORIDE
     Route: 065
  27. DEMEROL [Suspect]
     Active Substance: MEPERIDINE HYDROCHLORIDE
     Route: 065
  28. DEMEROL [Suspect]
     Active Substance: MEPERIDINE HYDROCHLORIDE
     Route: 065
  29. DEMEROL [Suspect]
     Active Substance: MEPERIDINE HYDROCHLORIDE
     Route: 065
  30. DEMEROL [Suspect]
     Active Substance: MEPERIDINE HYDROCHLORIDE
     Route: 065
  31. DEMEROL [Suspect]
     Active Substance: MEPERIDINE HYDROCHLORIDE
     Route: 065
  32. DEMEROL [Suspect]
     Active Substance: MEPERIDINE HYDROCHLORIDE
     Route: 065
  33. DEMEROL [Suspect]
     Active Substance: MEPERIDINE HYDROCHLORIDE
     Route: 065
  34. DEMEROL [Suspect]
     Active Substance: MEPERIDINE HYDROCHLORIDE
     Route: 065
  35. DEMEROL [Suspect]
     Active Substance: MEPERIDINE HYDROCHLORIDE
     Route: 065
  36. DEMEROL [Suspect]
     Active Substance: MEPERIDINE HYDROCHLORIDE
     Route: 065
  37. DEMEROL [Suspect]
     Active Substance: MEPERIDINE HYDROCHLORIDE
     Route: 065
  38. DEMEROL [Suspect]
     Active Substance: MEPERIDINE HYDROCHLORIDE
     Route: 065
  39. DEMEROL [Suspect]
     Active Substance: MEPERIDINE HYDROCHLORIDE
     Route: 065
  40. DEMEROL [Suspect]
     Active Substance: MEPERIDINE HYDROCHLORIDE
     Route: 065
  41. AMITRIPTYLINE [Suspect]
     Active Substance: AMITRIPTYLINE
     Indication: Product used for unknown indication
     Route: 065
  42. AMITRIPTYLINE [Suspect]
     Active Substance: AMITRIPTYLINE
     Route: 065
  43. AMITRIPTYLINE [Suspect]
     Active Substance: AMITRIPTYLINE
     Route: 065
  44. AMITRIPTYLINE [Suspect]
     Active Substance: AMITRIPTYLINE
     Route: 065
  45. AMITRIPTYLINE [Suspect]
     Active Substance: AMITRIPTYLINE
     Route: 065
  46. AMITRIPTYLINE [Suspect]
     Active Substance: AMITRIPTYLINE
     Route: 065
  47. AMITRIPTYLINE [Suspect]
     Active Substance: AMITRIPTYLINE
     Route: 065
  48. AMITRIPTYLINE [Suspect]
     Active Substance: AMITRIPTYLINE
     Route: 065
  49. AMITRIPTYLINE [Suspect]
     Active Substance: AMITRIPTYLINE
     Route: 065
  50. AMITRIPTYLINE [Suspect]
     Active Substance: AMITRIPTYLINE
     Route: 065
  51. AMITRIPTYLINE [Suspect]
     Active Substance: AMITRIPTYLINE
     Route: 065
  52. AMITRIPTYLINE [Suspect]
     Active Substance: AMITRIPTYLINE
     Route: 065
  53. AMITRIPTYLINE [Suspect]
     Active Substance: AMITRIPTYLINE
     Route: 065
  54. AMITRIPTYLINE [Suspect]
     Active Substance: AMITRIPTYLINE
     Route: 065
  55. AMITRIPTYLINE [Suspect]
     Active Substance: AMITRIPTYLINE
     Route: 065
  56. AMITRIPTYLINE [Suspect]
     Active Substance: AMITRIPTYLINE
     Route: 065
  57. AMITRIPTYLINE [Suspect]
     Active Substance: AMITRIPTYLINE
     Route: 065
  58. AMITRIPTYLINE [Suspect]
     Active Substance: AMITRIPTYLINE
     Route: 065
  59. MORPHINE SULFATE [Suspect]
     Active Substance: MORPHINE SULFATE
     Indication: Migraine
     Route: 065
  60. MORPHINE SULFATE [Suspect]
     Active Substance: MORPHINE SULFATE
     Route: 065
  61. MORPHINE SULFATE [Suspect]
     Active Substance: MORPHINE SULFATE
     Route: 065
  62. ESOMEPRAZOLE MAGNESIUM [Suspect]
     Active Substance: ESOMEPRAZOLE MAGNESIUM
     Indication: Product used for unknown indication
     Route: 048
  63. ESOMEPRAZOLE MAGNESIUM [Suspect]
     Active Substance: ESOMEPRAZOLE MAGNESIUM
     Route: 048
  64. ESOMEPRAZOLE MAGNESIUM [Suspect]
     Active Substance: ESOMEPRAZOLE MAGNESIUM
     Route: 048
  65. ESOMEPRAZOLE MAGNESIUM [Suspect]
     Active Substance: ESOMEPRAZOLE MAGNESIUM
     Route: 048
  66. ESOMEPRAZOLE MAGNESIUM [Suspect]
     Active Substance: ESOMEPRAZOLE MAGNESIUM
     Route: 048
  67. ESOMEPRAZOLE MAGNESIUM [Suspect]
     Active Substance: ESOMEPRAZOLE MAGNESIUM
     Route: 048
  68. ESOMEPRAZOLE MAGNESIUM [Suspect]
     Active Substance: ESOMEPRAZOLE MAGNESIUM
     Route: 048
  69. ESOMEPRAZOLE MAGNESIUM [Suspect]
     Active Substance: ESOMEPRAZOLE MAGNESIUM
     Route: 048
  70. ESOMEPRAZOLE MAGNESIUM [Suspect]
     Active Substance: ESOMEPRAZOLE MAGNESIUM
     Route: 048
  71. ESOMEPRAZOLE MAGNESIUM [Suspect]
     Active Substance: ESOMEPRAZOLE MAGNESIUM
     Route: 048
  72. ESOMEPRAZOLE MAGNESIUM [Suspect]
     Active Substance: ESOMEPRAZOLE MAGNESIUM
     Route: 048
  73. ESOMEPRAZOLE MAGNESIUM [Suspect]
     Active Substance: ESOMEPRAZOLE MAGNESIUM
     Route: 048
  74. ESOMEPRAZOLE MAGNESIUM [Suspect]
     Active Substance: ESOMEPRAZOLE MAGNESIUM
     Route: 048
  75. ESOMEPRAZOLE MAGNESIUM [Suspect]
     Active Substance: ESOMEPRAZOLE MAGNESIUM
     Route: 048
  76. ESOMEPRAZOLE MAGNESIUM [Suspect]
     Active Substance: ESOMEPRAZOLE MAGNESIUM
     Route: 048
  77. ESOMEPRAZOLE MAGNESIUM [Suspect]
     Active Substance: ESOMEPRAZOLE MAGNESIUM
     Route: 048
  78. ESOMEPRAZOLE MAGNESIUM [Suspect]
     Active Substance: ESOMEPRAZOLE MAGNESIUM
     Route: 048
  79. ESOMEPRAZOLE MAGNESIUM [Suspect]
     Active Substance: ESOMEPRAZOLE MAGNESIUM
     Route: 048
  80. ESOMEPRAZOLE MAGNESIUM [Suspect]
     Active Substance: ESOMEPRAZOLE MAGNESIUM
     Route: 048
  81. ESOMEPRAZOLE MAGNESIUM [Suspect]
     Active Substance: ESOMEPRAZOLE MAGNESIUM
     Route: 048
  82. ESOMEPRAZOLE MAGNESIUM [Suspect]
     Active Substance: ESOMEPRAZOLE MAGNESIUM
     Route: 048
  83. ESOMEPRAZOLE MAGNESIUM [Suspect]
     Active Substance: ESOMEPRAZOLE MAGNESIUM
     Route: 048
  84. ESOMEPRAZOLE MAGNESIUM [Suspect]
     Active Substance: ESOMEPRAZOLE MAGNESIUM
     Route: 048
  85. ESOMEPRAZOLE MAGNESIUM [Suspect]
     Active Substance: ESOMEPRAZOLE MAGNESIUM
     Route: 048
  86. ESOMEPRAZOLE MAGNESIUM [Suspect]
     Active Substance: ESOMEPRAZOLE MAGNESIUM
     Route: 048
  87. ESOMEPRAZOLE MAGNESIUM [Suspect]
     Active Substance: ESOMEPRAZOLE MAGNESIUM
     Route: 048
  88. ESOMEPRAZOLE MAGNESIUM [Suspect]
     Active Substance: ESOMEPRAZOLE MAGNESIUM
     Route: 048
  89. ESOMEPRAZOLE MAGNESIUM [Suspect]
     Active Substance: ESOMEPRAZOLE MAGNESIUM
     Route: 048
  90. ESOMEPRAZOLE MAGNESIUM [Suspect]
     Active Substance: ESOMEPRAZOLE MAGNESIUM
     Route: 048
  91. ESOMEPRAZOLE MAGNESIUM [Suspect]
     Active Substance: ESOMEPRAZOLE MAGNESIUM
     Route: 048
  92. ESOMEPRAZOLE MAGNESIUM [Suspect]
     Active Substance: ESOMEPRAZOLE MAGNESIUM
     Route: 048
  93. ESOMEPRAZOLE MAGNESIUM [Suspect]
     Active Substance: ESOMEPRAZOLE MAGNESIUM
     Route: 048
  94. ESOMEPRAZOLE MAGNESIUM [Suspect]
     Active Substance: ESOMEPRAZOLE MAGNESIUM
     Route: 048
  95. ESOMEPRAZOLE MAGNESIUM [Suspect]
     Active Substance: ESOMEPRAZOLE MAGNESIUM
     Route: 048
  96. ESOMEPRAZOLE MAGNESIUM [Suspect]
     Active Substance: ESOMEPRAZOLE MAGNESIUM
     Route: 048
  97. ESOMEPRAZOLE MAGNESIUM [Suspect]
     Active Substance: ESOMEPRAZOLE MAGNESIUM
     Route: 048
  98. ESOMEPRAZOLE MAGNESIUM [Suspect]
     Active Substance: ESOMEPRAZOLE MAGNESIUM
     Route: 048
  99. ESOMEPRAZOLE MAGNESIUM [Suspect]
     Active Substance: ESOMEPRAZOLE MAGNESIUM
     Route: 048
  100. ESOMEPRAZOLE MAGNESIUM [Suspect]
     Active Substance: ESOMEPRAZOLE MAGNESIUM
     Route: 048
  101. ESOMEPRAZOLE MAGNESIUM [Suspect]
     Active Substance: ESOMEPRAZOLE MAGNESIUM
     Route: 048
  102. ESOMEPRAZOLE MAGNESIUM [Suspect]
     Active Substance: ESOMEPRAZOLE MAGNESIUM
     Route: 048
  103. ESOMEPRAZOLE MAGNESIUM [Suspect]
     Active Substance: ESOMEPRAZOLE MAGNESIUM
     Route: 048
  104. ESOMEPRAZOLE MAGNESIUM [Suspect]
     Active Substance: ESOMEPRAZOLE MAGNESIUM
     Route: 048
  105. ESOMEPRAZOLE MAGNESIUM [Suspect]
     Active Substance: ESOMEPRAZOLE MAGNESIUM
     Route: 048
  106. ESOMEPRAZOLE MAGNESIUM [Suspect]
     Active Substance: ESOMEPRAZOLE MAGNESIUM
     Route: 048
  107. ESOMEPRAZOLE MAGNESIUM [Suspect]
     Active Substance: ESOMEPRAZOLE MAGNESIUM
     Route: 048
  108. ESOMEPRAZOLE MAGNESIUM [Suspect]
     Active Substance: ESOMEPRAZOLE MAGNESIUM
     Route: 048
  109. ESOMEPRAZOLE MAGNESIUM [Suspect]
     Active Substance: ESOMEPRAZOLE MAGNESIUM
     Route: 048
  110. ESOMEPRAZOLE MAGNESIUM [Suspect]
     Active Substance: ESOMEPRAZOLE MAGNESIUM
     Route: 048
  111. ESOMEPRAZOLE MAGNESIUM [Suspect]
     Active Substance: ESOMEPRAZOLE MAGNESIUM
     Route: 048
  112. NAPROXEN [Suspect]
     Active Substance: NAPROXEN
     Indication: Product used for unknown indication
     Route: 048
  113. NAPROXEN [Suspect]
     Active Substance: NAPROXEN
     Route: 065
  114. NAPROXEN [Suspect]
     Active Substance: NAPROXEN
     Route: 065
  115. NAPROXEN [Suspect]
     Active Substance: NAPROXEN
     Route: 065
  116. NAPROXEN [Suspect]
     Active Substance: NAPROXEN
     Route: 065
  117. NAPROXEN [Suspect]
     Active Substance: NAPROXEN
     Route: 065
  118. NAPROXEN [Suspect]
     Active Substance: NAPROXEN
     Route: 065
  119. NAPROXEN [Suspect]
     Active Substance: NAPROXEN
     Route: 065
  120. NAPROXEN [Suspect]
     Active Substance: NAPROXEN
     Route: 065
  121. NAPROXEN [Suspect]
     Active Substance: NAPROXEN
     Route: 065
  122. NAPROXEN [Suspect]
     Active Substance: NAPROXEN
     Route: 065
  123. NAPROXEN [Suspect]
     Active Substance: NAPROXEN
     Route: 065
  124. NAPROXEN [Suspect]
     Active Substance: NAPROXEN
     Route: 065
  125. NAPROXEN [Suspect]
     Active Substance: NAPROXEN
     Route: 065
  126. NAPROXEN [Suspect]
     Active Substance: NAPROXEN
     Route: 065
  127. NAPROXEN [Suspect]
     Active Substance: NAPROXEN
     Route: 065
  128. BOTOX [Suspect]
     Active Substance: ONABOTULINUMTOXINA
     Indication: Product used for unknown indication
     Route: 065
  129. BOTOX [Suspect]
     Active Substance: ONABOTULINUMTOXINA
     Route: 065
  130. BOTOX [Suspect]
     Active Substance: ONABOTULINUMTOXINA
     Dosage: 1 DF 1 DAY
     Route: 065
  131. BOTOX [Suspect]
     Active Substance: ONABOTULINUMTOXINA
     Route: 065
  132. BOTOX [Suspect]
     Active Substance: ONABOTULINUMTOXINA
     Route: 065
  133. BOTOX [Suspect]
     Active Substance: ONABOTULINUMTOXINA
     Route: 065
  134. BOTOX [Suspect]
     Active Substance: ONABOTULINUMTOXINA
     Route: 065
  135. BOTOX [Suspect]
     Active Substance: ONABOTULINUMTOXINA
     Route: 065
  136. BOTOX [Suspect]
     Active Substance: ONABOTULINUMTOXINA
     Route: 065
  137. BOTOX [Suspect]
     Active Substance: ONABOTULINUMTOXINA
     Route: 065
  138. BOTOX [Suspect]
     Active Substance: ONABOTULINUMTOXINA
     Route: 065
  139. BOTOX [Suspect]
     Active Substance: ONABOTULINUMTOXINA
     Route: 065
  140. BOTOX [Suspect]
     Active Substance: ONABOTULINUMTOXINA
     Route: 065
  141. BOTOX [Suspect]
     Active Substance: ONABOTULINUMTOXINA
     Route: 065
  142. BOTOX [Suspect]
     Active Substance: ONABOTULINUMTOXINA
     Route: 065
  143. BOTOX [Suspect]
     Active Substance: ONABOTULINUMTOXINA
     Route: 065
  144. BOTOX [Suspect]
     Active Substance: ONABOTULINUMTOXINA
     Route: 065
  145. BOTOX [Suspect]
     Active Substance: ONABOTULINUMTOXINA
     Route: 065
  146. BOTOX [Suspect]
     Active Substance: ONABOTULINUMTOXINA
     Route: 065
  147. BOTOX [Suspect]
     Active Substance: ONABOTULINUMTOXINA
     Route: 065
  148. BOTOX [Suspect]
     Active Substance: ONABOTULINUMTOXINA
     Route: 065
  149. BOTOX [Suspect]
     Active Substance: ONABOTULINUMTOXINA
     Route: 065
  150. BOTOX [Suspect]
     Active Substance: ONABOTULINUMTOXINA
     Route: 065
  151. BOTOX [Suspect]
     Active Substance: ONABOTULINUMTOXINA
     Route: 065
  152. BOTOX [Suspect]
     Active Substance: ONABOTULINUMTOXINA
     Route: 065
  153. BOTOX [Suspect]
     Active Substance: ONABOTULINUMTOXINA
     Route: 065
  154. BOTOX [Suspect]
     Active Substance: ONABOTULINUMTOXINA
     Route: 065
  155. BOTOX [Suspect]
     Active Substance: ONABOTULINUMTOXINA
     Route: 065
  156. BOTOX [Suspect]
     Active Substance: ONABOTULINUMTOXINA
     Route: 065
  157. BOTOX [Suspect]
     Active Substance: ONABOTULINUMTOXINA
     Route: 065
  158. BOTOX [Suspect]
     Active Substance: ONABOTULINUMTOXINA
     Route: 065
  159. BOTOX [Suspect]
     Active Substance: ONABOTULINUMTOXINA
     Route: 065
  160. BOTOX [Suspect]
     Active Substance: ONABOTULINUMTOXINA
     Route: 065
  161. BOTOX [Suspect]
     Active Substance: ONABOTULINUMTOXINA
     Route: 065
  162. BOTOX [Suspect]
     Active Substance: ONABOTULINUMTOXINA
     Route: 065
  163. BOTOX [Suspect]
     Active Substance: ONABOTULINUMTOXINA
     Route: 065
  164. BOTOX [Suspect]
     Active Substance: ONABOTULINUMTOXINA
     Route: 065
  165. BOTOX [Suspect]
     Active Substance: ONABOTULINUMTOXINA
     Route: 065
  166. BOTOX [Suspect]
     Active Substance: ONABOTULINUMTOXINA
     Route: 065
  167. BOTOX [Suspect]
     Active Substance: ONABOTULINUMTOXINA
     Route: 065
  168. BOTOX [Suspect]
     Active Substance: ONABOTULINUMTOXINA
     Route: 065
  169. BOTOX [Suspect]
     Active Substance: ONABOTULINUMTOXINA
     Route: 065
  170. BOTOX [Suspect]
     Active Substance: ONABOTULINUMTOXINA
     Route: 065
  171. BOTOX [Suspect]
     Active Substance: ONABOTULINUMTOXINA
     Route: 065
  172. BOTOX [Suspect]
     Active Substance: ONABOTULINUMTOXINA
     Route: 065
  173. BOTOX [Suspect]
     Active Substance: ONABOTULINUMTOXINA
     Route: 065
  174. BOTOX [Suspect]
     Active Substance: ONABOTULINUMTOXINA
     Route: 065
  175. BOTOX [Suspect]
     Active Substance: ONABOTULINUMTOXINA
     Route: 065
  176. BOTOX [Suspect]
     Active Substance: ONABOTULINUMTOXINA
     Route: 030
  177. BOTOX [Suspect]
     Active Substance: ONABOTULINUMTOXINA
     Route: 065
  178. PANADOL [Suspect]
     Active Substance: ACETAMINOPHEN
     Indication: Product used for unknown indication
     Route: 065
  179. PANADOL [Suspect]
     Active Substance: ACETAMINOPHEN
     Indication: Migraine
     Route: 065
  180. PANADOL [Suspect]
     Active Substance: ACETAMINOPHEN
     Route: 065
  181. PANADOL [Suspect]
     Active Substance: ACETAMINOPHEN
     Route: 065
  182. PANADOL [Suspect]
     Active Substance: ACETAMINOPHEN
     Route: 065
  183. PANADOL [Suspect]
     Active Substance: ACETAMINOPHEN
     Route: 065
  184. PANADOL [Suspect]
     Active Substance: ACETAMINOPHEN
     Route: 065
  185. DIHYDROERGOTAMINE MESYLATE [Suspect]
     Active Substance: DIHYDROERGOTAMINE MESYLATE
     Indication: Migraine
     Route: 065
  186. DIHYDROERGOTAMINE MESYLATE [Suspect]
     Active Substance: DIHYDROERGOTAMINE MESYLATE
     Route: 065
  187. DIHYDROERGOTAMINE MESYLATE [Suspect]
     Active Substance: DIHYDROERGOTAMINE MESYLATE
     Route: 065
  188. TRIAMCINOLONE ACETONIDE [Suspect]
     Active Substance: TRIAMCINOLONE ACETONIDE
     Indication: Migraine
     Route: 065
  189. PROPRANOLOL [Suspect]
     Active Substance: PROPRANOLOL HYDROCHLORIDE
     Indication: Migraine
     Route: 065
  190. PROPRANOLOL [Suspect]
     Active Substance: PROPRANOLOL HYDROCHLORIDE
     Route: 065
  191. PROPRANOLOL [Suspect]
     Active Substance: PROPRANOLOL HYDROCHLORIDE
     Route: 065
  192. PROPRANOLOL [Suspect]
     Active Substance: PROPRANOLOL HYDROCHLORIDE
     Route: 065
  193. PROPRANOLOL [Suspect]
     Active Substance: PROPRANOLOL HYDROCHLORIDE
     Route: 065
  194. PROPRANOLOL [Suspect]
     Active Substance: PROPRANOLOL HYDROCHLORIDE
     Route: 065
  195. PROPRANOLOL [Suspect]
     Active Substance: PROPRANOLOL HYDROCHLORIDE
     Route: 065
  196. PROPRANOLOL [Suspect]
     Active Substance: PROPRANOLOL HYDROCHLORIDE
     Route: 065
  197. PROPRANOLOL [Suspect]
     Active Substance: PROPRANOLOL HYDROCHLORIDE
     Route: 065
  198. PROPRANOLOL [Suspect]
     Active Substance: PROPRANOLOL HYDROCHLORIDE
     Route: 065
  199. PROPRANOLOL [Suspect]
     Active Substance: PROPRANOLOL HYDROCHLORIDE
     Route: 065
  200. PROPRANOLOL [Suspect]
     Active Substance: PROPRANOLOL HYDROCHLORIDE
     Route: 065
  201. PROPRANOLOL [Suspect]
     Active Substance: PROPRANOLOL HYDROCHLORIDE
     Route: 065
  202. PROPRANOLOL [Suspect]
     Active Substance: PROPRANOLOL HYDROCHLORIDE
     Route: 065
  203. PROPRANOLOL [Suspect]
     Active Substance: PROPRANOLOL HYDROCHLORIDE
     Route: 065
  204. PROPRANOLOL [Suspect]
     Active Substance: PROPRANOLOL HYDROCHLORIDE
     Route: 065
  205. PROPRANOLOL [Suspect]
     Active Substance: PROPRANOLOL HYDROCHLORIDE
     Route: 065
  206. PROPRANOLOL [Suspect]
     Active Substance: PROPRANOLOL HYDROCHLORIDE
     Route: 065
  207. PROPRANOLOL [Suspect]
     Active Substance: PROPRANOLOL HYDROCHLORIDE
     Route: 065
  208. PROPRANOLOL [Suspect]
     Active Substance: PROPRANOLOL HYDROCHLORIDE
     Route: 065
  209. PROPRANOLOL [Suspect]
     Active Substance: PROPRANOLOL HYDROCHLORIDE
     Route: 065
  210. PROPRANOLOL [Suspect]
     Active Substance: PROPRANOLOL HYDROCHLORIDE
     Route: 065
  211. PROPRANOLOL [Suspect]
     Active Substance: PROPRANOLOL HYDROCHLORIDE
     Route: 065
  212. PROPRANOLOL [Suspect]
     Active Substance: PROPRANOLOL HYDROCHLORIDE
     Route: 065
  213. PROPRANOLOL [Suspect]
     Active Substance: PROPRANOLOL HYDROCHLORIDE
     Route: 065
  214. PROPRANOLOL [Suspect]
     Active Substance: PROPRANOLOL HYDROCHLORIDE
     Route: 065
  215. PROPRANOLOL [Suspect]
     Active Substance: PROPRANOLOL HYDROCHLORIDE
     Route: 065
  216. PROPRANOLOL [Suspect]
     Active Substance: PROPRANOLOL HYDROCHLORIDE
     Route: 065
  217. PROPRANOLOL [Suspect]
     Active Substance: PROPRANOLOL HYDROCHLORIDE
     Route: 065
  218. PROPRANOLOL [Suspect]
     Active Substance: PROPRANOLOL HYDROCHLORIDE
     Route: 065
  219. PROPRANOLOL [Suspect]
     Active Substance: PROPRANOLOL HYDROCHLORIDE
     Route: 065
  220. PROPRANOLOL [Suspect]
     Active Substance: PROPRANOLOL HYDROCHLORIDE
     Route: 065
  221. PROPRANOLOL [Suspect]
     Active Substance: PROPRANOLOL HYDROCHLORIDE
     Route: 065
  222. PROPRANOLOL [Suspect]
     Active Substance: PROPRANOLOL HYDROCHLORIDE
     Route: 065
  223. PROPRANOLOL [Suspect]
     Active Substance: PROPRANOLOL HYDROCHLORIDE
     Route: 065
  224. PROPRANOLOL [Suspect]
     Active Substance: PROPRANOLOL HYDROCHLORIDE
     Route: 065
  225. PROPRANOLOL [Suspect]
     Active Substance: PROPRANOLOL HYDROCHLORIDE
     Route: 065
  226. PROPRANOLOL [Suspect]
     Active Substance: PROPRANOLOL HYDROCHLORIDE
     Route: 065
  227. PROPRANOLOL [Suspect]
     Active Substance: PROPRANOLOL HYDROCHLORIDE
     Route: 065
  228. PROPRANOLOL [Suspect]
     Active Substance: PROPRANOLOL HYDROCHLORIDE
     Route: 065
  229. IBUPROFEN [Suspect]
     Active Substance: IBUPROFEN
     Indication: Product used for unknown indication
     Route: 065
  230. IBUPROFEN [Suspect]
     Active Substance: IBUPROFEN
     Route: 065
  231. GABAPENTIN [Suspect]
     Active Substance: GABAPENTIN
     Indication: Product used for unknown indication
     Route: 065
  232. TOPIRAMATE [Suspect]
     Active Substance: TOPIRAMATE
     Indication: Migraine
     Route: 065
  233. TOPIRAMATE [Suspect]
     Active Substance: TOPIRAMATE
     Route: 065
  234. TOPIRAMATE [Suspect]
     Active Substance: TOPIRAMATE
     Route: 048
  235. HYDROMORPHONE [Suspect]
     Active Substance: HYDROMORPHONE
     Indication: Migraine
     Route: 065
  236. HYDROMORPHONE [Suspect]
     Active Substance: HYDROMORPHONE
     Indication: Product used for unknown indication
     Route: 065
  237. CELEBREX [Suspect]
     Active Substance: CELECOXIB
     Indication: Product used for unknown indication
     Route: 065
  238. KETAMINE [Suspect]
     Active Substance: KETAMINE
     Indication: Migraine
     Route: 065
  239. KETAMINE [Suspect]
     Active Substance: KETAMINE
     Route: 065
  240. VIMOVO [Suspect]
     Active Substance: ESOMEPRAZOLE MAGNESIUM\NAPROXEN
     Indication: Product used for unknown indication
     Route: 065
  241. VIMOVO [Suspect]
     Active Substance: ESOMEPRAZOLE MAGNESIUM\NAPROXEN
     Route: 065
  242. VIMOVO [Suspect]
     Active Substance: ESOMEPRAZOLE MAGNESIUM\NAPROXEN
     Route: 065
  243. VIMOVO [Suspect]
     Active Substance: ESOMEPRAZOLE MAGNESIUM\NAPROXEN
     Route: 065
  244. VIMOVO [Suspect]
     Active Substance: ESOMEPRAZOLE MAGNESIUM\NAPROXEN
     Route: 065
  245. VIMOVO [Suspect]
     Active Substance: ESOMEPRAZOLE MAGNESIUM\NAPROXEN
     Route: 065
  246. VIMOVO [Suspect]
     Active Substance: ESOMEPRAZOLE MAGNESIUM\NAPROXEN
     Route: 065
  247. VIMOVO [Suspect]
     Active Substance: ESOMEPRAZOLE MAGNESIUM\NAPROXEN
     Route: 065
  248. VIMOVO [Suspect]
     Active Substance: ESOMEPRAZOLE MAGNESIUM\NAPROXEN
     Route: 065
  249. VIMOVO [Suspect]
     Active Substance: ESOMEPRAZOLE MAGNESIUM\NAPROXEN
     Route: 065
  250. VIMOVO [Suspect]
     Active Substance: ESOMEPRAZOLE MAGNESIUM\NAPROXEN
     Route: 065
  251. VIMOVO [Suspect]
     Active Substance: ESOMEPRAZOLE MAGNESIUM\NAPROXEN
     Route: 065
  252. VIMOVO [Suspect]
     Active Substance: ESOMEPRAZOLE MAGNESIUM\NAPROXEN
     Route: 065
  253. VIMOVO [Suspect]
     Active Substance: ESOMEPRAZOLE MAGNESIUM\NAPROXEN
     Route: 065
  254. VIMOVO [Suspect]
     Active Substance: ESOMEPRAZOLE MAGNESIUM\NAPROXEN
     Route: 065
  255. VIMOVO [Suspect]
     Active Substance: ESOMEPRAZOLE MAGNESIUM\NAPROXEN
     Route: 065
  256. VIMOVO [Suspect]
     Active Substance: ESOMEPRAZOLE MAGNESIUM\NAPROXEN
     Route: 065
  257. VIMOVO [Suspect]
     Active Substance: ESOMEPRAZOLE MAGNESIUM\NAPROXEN
     Route: 065
  258. VIMOVO [Suspect]
     Active Substance: ESOMEPRAZOLE MAGNESIUM\NAPROXEN
     Route: 065
  259. VIMOVO [Suspect]
     Active Substance: ESOMEPRAZOLE MAGNESIUM\NAPROXEN
     Route: 065
  260. VIMOVO [Suspect]
     Active Substance: ESOMEPRAZOLE MAGNESIUM\NAPROXEN
     Route: 065
  261. VIMOVO [Suspect]
     Active Substance: ESOMEPRAZOLE MAGNESIUM\NAPROXEN
     Route: 065
  262. VIMOVO [Suspect]
     Active Substance: ESOMEPRAZOLE MAGNESIUM\NAPROXEN
     Route: 065
  263. VIMOVO [Suspect]
     Active Substance: ESOMEPRAZOLE MAGNESIUM\NAPROXEN
     Route: 065
  264. VIMOVO [Suspect]
     Active Substance: ESOMEPRAZOLE MAGNESIUM\NAPROXEN
     Route: 065
  265. VIMOVO [Suspect]
     Active Substance: ESOMEPRAZOLE MAGNESIUM\NAPROXEN
     Route: 065
  266. VIMOVO [Suspect]
     Active Substance: ESOMEPRAZOLE MAGNESIUM\NAPROXEN
     Route: 065
  267. VIMOVO [Suspect]
     Active Substance: ESOMEPRAZOLE MAGNESIUM\NAPROXEN
     Route: 065
  268. VIMOVO [Suspect]
     Active Substance: ESOMEPRAZOLE MAGNESIUM\NAPROXEN
     Route: 065
  269. VIMOVO [Suspect]
     Active Substance: ESOMEPRAZOLE MAGNESIUM\NAPROXEN
     Route: 065
  270. VIMOVO [Suspect]
     Active Substance: ESOMEPRAZOLE MAGNESIUM\NAPROXEN
     Route: 065
  271. VIMOVO [Suspect]
     Active Substance: ESOMEPRAZOLE MAGNESIUM\NAPROXEN
     Route: 065
  272. VIMOVO [Suspect]
     Active Substance: ESOMEPRAZOLE MAGNESIUM\NAPROXEN
     Route: 065
  273. VIMOVO [Suspect]
     Active Substance: ESOMEPRAZOLE MAGNESIUM\NAPROXEN
     Route: 065
  274. VIMOVO [Suspect]
     Active Substance: ESOMEPRAZOLE MAGNESIUM\NAPROXEN
     Route: 065
  275. VIMOVO [Suspect]
     Active Substance: ESOMEPRAZOLE MAGNESIUM\NAPROXEN
     Route: 065
  276. VIMOVO [Suspect]
     Active Substance: ESOMEPRAZOLE MAGNESIUM\NAPROXEN
     Route: 065
  277. VIMOVO [Suspect]
     Active Substance: ESOMEPRAZOLE MAGNESIUM\NAPROXEN
     Route: 065
  278. VIMOVO [Suspect]
     Active Substance: ESOMEPRAZOLE MAGNESIUM\NAPROXEN
     Route: 065
  279. VIMOVO [Suspect]
     Active Substance: ESOMEPRAZOLE MAGNESIUM\NAPROXEN
     Route: 065
  280. VIMOVO [Suspect]
     Active Substance: ESOMEPRAZOLE MAGNESIUM\NAPROXEN
     Route: 065
  281. VIMOVO [Suspect]
     Active Substance: ESOMEPRAZOLE MAGNESIUM\NAPROXEN
     Route: 065
  282. VIMOVO [Suspect]
     Active Substance: ESOMEPRAZOLE MAGNESIUM\NAPROXEN
     Route: 065
  283. VIMOVO [Suspect]
     Active Substance: ESOMEPRAZOLE MAGNESIUM\NAPROXEN
     Route: 065
  284. VIMOVO [Suspect]
     Active Substance: ESOMEPRAZOLE MAGNESIUM\NAPROXEN
     Route: 065
  285. VIMOVO [Suspect]
     Active Substance: ESOMEPRAZOLE MAGNESIUM\NAPROXEN
     Route: 065
  286. VIMOVO [Suspect]
     Active Substance: ESOMEPRAZOLE MAGNESIUM\NAPROXEN
     Route: 065
  287. VIMOVO [Suspect]
     Active Substance: ESOMEPRAZOLE MAGNESIUM\NAPROXEN
     Route: 065
  288. VIMOVO [Suspect]
     Active Substance: ESOMEPRAZOLE MAGNESIUM\NAPROXEN
     Route: 065
  289. TORADOL [Suspect]
     Active Substance: KETOROLAC TROMETHAMINE
     Indication: Migraine
     Route: 065
  290. TORADOL [Suspect]
     Active Substance: KETOROLAC TROMETHAMINE
     Route: 065
  291. TORADOL [Suspect]
     Active Substance: KETOROLAC TROMETHAMINE
     Route: 065
  292. NORTRIPTYLINE [Suspect]
     Active Substance: NORTRIPTYLINE
     Indication: Product used for unknown indication
     Route: 065
  293. ALMOTRIPTAN MALATE [Suspect]
     Active Substance: ALMOTRIPTAN MALATE
     Indication: Product used for unknown indication
     Route: 065
  294. ALMOTRIPTAN MALATE [Suspect]
     Active Substance: ALMOTRIPTAN MALATE
     Route: 065
  295. ALMOTRIPTAN MALATE [Suspect]
     Active Substance: ALMOTRIPTAN MALATE
     Route: 065
  296. ALMOTRIPTAN MALATE [Suspect]
     Active Substance: ALMOTRIPTAN MALATE
     Route: 065
  297. ALMOTRIPTAN MALATE [Suspect]
     Active Substance: ALMOTRIPTAN MALATE
     Route: 065
  298. ALMOTRIPTAN MALATE [Suspect]
     Active Substance: ALMOTRIPTAN MALATE
     Route: 065
  299. ALMOTRIPTAN MALATE [Suspect]
     Active Substance: ALMOTRIPTAN MALATE
     Route: 065
  300. ALMOTRIPTAN MALATE [Suspect]
     Active Substance: ALMOTRIPTAN MALATE
     Route: 065
  301. ALMOTRIPTAN MALATE [Suspect]
     Active Substance: ALMOTRIPTAN MALATE
     Route: 065
  302. ALMOTRIPTAN MALATE [Suspect]
     Active Substance: ALMOTRIPTAN MALATE
     Route: 065
  303. ALMOTRIPTAN MALATE [Suspect]
     Active Substance: ALMOTRIPTAN MALATE
     Route: 065
  304. ALMOTRIPTAN MALATE [Suspect]
     Active Substance: ALMOTRIPTAN MALATE
     Route: 065
  305. ALMOTRIPTAN MALATE [Suspect]
     Active Substance: ALMOTRIPTAN MALATE
     Route: 065
  306. ALMOTRIPTAN MALATE [Suspect]
     Active Substance: ALMOTRIPTAN MALATE
     Route: 065
  307. ALMOTRIPTAN MALATE [Suspect]
     Active Substance: ALMOTRIPTAN MALATE
     Route: 065
  308. ALMOTRIPTAN MALATE [Suspect]
     Active Substance: ALMOTRIPTAN MALATE
     Route: 065
  309. ALMOTRIPTAN MALATE [Suspect]
     Active Substance: ALMOTRIPTAN MALATE
     Route: 065
  310. ALMOTRIPTAN MALATE [Suspect]
     Active Substance: ALMOTRIPTAN MALATE
     Route: 065
  311. ALMOTRIPTAN MALATE [Suspect]
     Active Substance: ALMOTRIPTAN MALATE
     Route: 065
  312. ALMOTRIPTAN MALATE [Suspect]
     Active Substance: ALMOTRIPTAN MALATE
     Route: 065
  313. ALMOTRIPTAN MALATE [Suspect]
     Active Substance: ALMOTRIPTAN MALATE
     Route: 065
  314. ALMOTRIPTAN MALATE [Suspect]
     Active Substance: ALMOTRIPTAN MALATE
     Route: 065
  315. ALMOTRIPTAN MALATE [Suspect]
     Active Substance: ALMOTRIPTAN MALATE
     Route: 065
  316. ALMOTRIPTAN MALATE [Suspect]
     Active Substance: ALMOTRIPTAN MALATE
     Route: 065
  317. ALMOTRIPTAN MALATE [Suspect]
     Active Substance: ALMOTRIPTAN MALATE
     Route: 065
  318. ALMOTRIPTAN MALATE [Suspect]
     Active Substance: ALMOTRIPTAN MALATE
     Route: 065
  319. ALMOTRIPTAN MALATE [Suspect]
     Active Substance: ALMOTRIPTAN MALATE
     Route: 065
  320. ALMOTRIPTAN MALATE [Suspect]
     Active Substance: ALMOTRIPTAN MALATE
     Route: 065
  321. ALMOTRIPTAN MALATE [Suspect]
     Active Substance: ALMOTRIPTAN MALATE
     Route: 065
  322. ALMOTRIPTAN MALATE [Suspect]
     Active Substance: ALMOTRIPTAN MALATE
     Route: 065
  323. ALMOTRIPTAN MALATE [Suspect]
     Active Substance: ALMOTRIPTAN MALATE
     Route: 065
  324. ALMOTRIPTAN MALATE [Suspect]
     Active Substance: ALMOTRIPTAN MALATE
     Route: 065
  325. ALMOTRIPTAN MALATE [Suspect]
     Active Substance: ALMOTRIPTAN MALATE
     Route: 065
  326. ALMOTRIPTAN MALATE [Suspect]
     Active Substance: ALMOTRIPTAN MALATE
     Route: 065
  327. ALMOTRIPTAN MALATE [Suspect]
     Active Substance: ALMOTRIPTAN MALATE
     Route: 065
  328. ALMOTRIPTAN MALATE [Suspect]
     Active Substance: ALMOTRIPTAN MALATE
     Route: 065
  329. ALMOTRIPTAN MALATE [Suspect]
     Active Substance: ALMOTRIPTAN MALATE
     Route: 065
  330. ALMOTRIPTAN MALATE [Suspect]
     Active Substance: ALMOTRIPTAN MALATE
     Route: 065
  331. ALMOTRIPTAN MALATE [Suspect]
     Active Substance: ALMOTRIPTAN MALATE
     Route: 065
  332. ALMOTRIPTAN MALATE [Suspect]
     Active Substance: ALMOTRIPTAN MALATE
     Route: 065
  333. ALMOTRIPTAN MALATE [Suspect]
     Active Substance: ALMOTRIPTAN MALATE
     Route: 065
  334. ALMOTRIPTAN MALATE [Suspect]
     Active Substance: ALMOTRIPTAN MALATE
     Route: 065
  335. ALMOTRIPTAN MALATE [Suspect]
     Active Substance: ALMOTRIPTAN MALATE
     Route: 065
  336. ALMOTRIPTAN MALATE [Suspect]
     Active Substance: ALMOTRIPTAN MALATE
     Route: 065
  337. ALMOTRIPTAN MALATE [Suspect]
     Active Substance: ALMOTRIPTAN MALATE
     Route: 065
  338. ALMOTRIPTAN MALATE [Suspect]
     Active Substance: ALMOTRIPTAN MALATE
     Route: 065
  339. ALMOTRIPTAN MALATE [Suspect]
     Active Substance: ALMOTRIPTAN MALATE
     Route: 065
  340. ALMOTRIPTAN MALATE [Suspect]
     Active Substance: ALMOTRIPTAN MALATE
     Route: 065
  341. ALMOTRIPTAN MALATE [Suspect]
     Active Substance: ALMOTRIPTAN MALATE
     Route: 065
  342. TOPAMAX [Suspect]
     Active Substance: TOPIRAMATE
     Indication: Product used for unknown indication
     Route: 065
  343. ACETAMINOPHEN\TRAMADOL [Suspect]
     Active Substance: ACETAMINOPHEN\TRAMADOL
     Indication: Migraine
     Route: 065
  344. ACETAMINOPHEN\TRAMADOL [Suspect]
     Active Substance: ACETAMINOPHEN\TRAMADOL
     Route: 065
  345. VENLAFAXINE HYDROCHLORIDE [Suspect]
     Active Substance: VENLAFAXINE HYDROCHLORIDE
     Indication: Migraine
     Route: 065
  346. VENLAFAXINE HYDROCHLORIDE [Suspect]
     Active Substance: VENLAFAXINE HYDROCHLORIDE
     Route: 065
  347. VENLAFAXINE HYDROCHLORIDE [Suspect]
     Active Substance: VENLAFAXINE HYDROCHLORIDE
     Route: 065
  348. ZOFRAN [Suspect]
     Active Substance: ONDANSETRON HYDROCHLORIDE
     Indication: Migraine
     Route: 065
  349. TENORETIC [Suspect]
     Active Substance: ATENOLOL\CHLORTHALIDONE
     Indication: Product used for unknown indication
     Route: 065
  350. TENORETIC [Suspect]
     Active Substance: ATENOLOL\CHLORTHALIDONE
     Route: 048
  351. TENORETIC [Suspect]
     Active Substance: ATENOLOL\CHLORTHALIDONE
     Route: 065
  352. TENORETIC [Suspect]
     Active Substance: ATENOLOL\CHLORTHALIDONE
     Route: 065
  353. TENORETIC [Suspect]
     Active Substance: ATENOLOL\CHLORTHALIDONE
     Route: 065
  354. TENORETIC [Suspect]
     Active Substance: ATENOLOL\CHLORTHALIDONE
     Route: 065
  355. TENORETIC [Suspect]
     Active Substance: ATENOLOL\CHLORTHALIDONE
     Route: 065
  356. TENORETIC [Suspect]
     Active Substance: ATENOLOL\CHLORTHALIDONE
     Route: 065
  357. TENORETIC [Suspect]
     Active Substance: ATENOLOL\CHLORTHALIDONE
     Route: 065
  358. TENORETIC [Suspect]
     Active Substance: ATENOLOL\CHLORTHALIDONE
     Route: 065
  359. TENORETIC [Suspect]
     Active Substance: ATENOLOL\CHLORTHALIDONE
     Route: 065
  360. TENORETIC [Suspect]
     Active Substance: ATENOLOL\CHLORTHALIDONE
     Route: 065
  361. TENORETIC [Suspect]
     Active Substance: ATENOLOL\CHLORTHALIDONE
     Route: 065
  362. TENORETIC [Suspect]
     Active Substance: ATENOLOL\CHLORTHALIDONE
     Route: 065
  363. TENORETIC [Suspect]
     Active Substance: ATENOLOL\CHLORTHALIDONE
     Route: 065
  364. TENORETIC [Suspect]
     Active Substance: ATENOLOL\CHLORTHALIDONE
     Route: 065
  365. TENORETIC [Suspect]
     Active Substance: ATENOLOL\CHLORTHALIDONE
     Route: 065
  366. TENORETIC [Suspect]
     Active Substance: ATENOLOL\CHLORTHALIDONE
     Route: 065
  367. TENORETIC [Suspect]
     Active Substance: ATENOLOL\CHLORTHALIDONE
     Route: 065
  368. TENORETIC [Suspect]
     Active Substance: ATENOLOL\CHLORTHALIDONE
     Route: 048
  369. TENORETIC [Suspect]
     Active Substance: ATENOLOL\CHLORTHALIDONE
     Route: 048
  370. TENORETIC [Suspect]
     Active Substance: ATENOLOL\CHLORTHALIDONE
     Route: 048
  371. TENORETIC [Suspect]
     Active Substance: ATENOLOL\CHLORTHALIDONE
     Route: 048
  372. TENORETIC [Suspect]
     Active Substance: ATENOLOL\CHLORTHALIDONE
     Route: 048
  373. TENORETIC [Suspect]
     Active Substance: ATENOLOL\CHLORTHALIDONE
     Route: 048
  374. TENORETIC [Suspect]
     Active Substance: ATENOLOL\CHLORTHALIDONE
     Route: 048
  375. TENORETIC [Suspect]
     Active Substance: ATENOLOL\CHLORTHALIDONE
     Route: 048
  376. TENORETIC [Suspect]
     Active Substance: ATENOLOL\CHLORTHALIDONE
     Route: 048
  377. TENORETIC [Suspect]
     Active Substance: ATENOLOL\CHLORTHALIDONE
     Route: 048
  378. TENORETIC [Suspect]
     Active Substance: ATENOLOL\CHLORTHALIDONE
     Route: 048
  379. TENORETIC [Suspect]
     Active Substance: ATENOLOL\CHLORTHALIDONE
     Route: 048
  380. TENORETIC [Suspect]
     Active Substance: ATENOLOL\CHLORTHALIDONE
     Route: 065
  381. TENORETIC [Suspect]
     Active Substance: ATENOLOL\CHLORTHALIDONE
     Route: 065
  382. TENORETIC [Suspect]
     Active Substance: ATENOLOL\CHLORTHALIDONE
     Route: 065
  383. TENORETIC [Suspect]
     Active Substance: ATENOLOL\CHLORTHALIDONE
     Route: 065
  384. TENORETIC [Suspect]
     Active Substance: ATENOLOL\CHLORTHALIDONE
     Route: 065
  385. TENORETIC [Suspect]
     Active Substance: ATENOLOL\CHLORTHALIDONE
     Route: 065
  386. TENORETIC [Suspect]
     Active Substance: ATENOLOL\CHLORTHALIDONE
     Route: 065
  387. TENORETIC [Suspect]
     Active Substance: ATENOLOL\CHLORTHALIDONE
     Route: 065
  388. TENORETIC [Suspect]
     Active Substance: ATENOLOL\CHLORTHALIDONE
     Route: 065
  389. TENORETIC [Suspect]
     Active Substance: ATENOLOL\CHLORTHALIDONE
     Route: 065
  390. TENORETIC [Suspect]
     Active Substance: ATENOLOL\CHLORTHALIDONE
     Route: 065
  391. TENORETIC [Suspect]
     Active Substance: ATENOLOL\CHLORTHALIDONE
     Route: 065
  392. TENORETIC [Suspect]
     Active Substance: ATENOLOL\CHLORTHALIDONE
     Route: 065
  393. TENORETIC [Suspect]
     Active Substance: ATENOLOL\CHLORTHALIDONE
     Route: 048
  394. TENORETIC [Suspect]
     Active Substance: ATENOLOL\CHLORTHALIDONE
     Route: 048
  395. TENORETIC [Suspect]
     Active Substance: ATENOLOL\CHLORTHALIDONE
     Route: 048
  396. TENORETIC [Suspect]
     Active Substance: ATENOLOL\CHLORTHALIDONE
     Route: 048
  397. TENORETIC [Suspect]
     Active Substance: ATENOLOL\CHLORTHALIDONE
     Route: 048
  398. TYLENOL [Suspect]
     Active Substance: ACETAMINOPHEN
     Indication: Product used for unknown indication
     Route: 065
  399. DICLOFENAC DIETHYLAMINE [Suspect]
     Active Substance: DICLOFENAC DIETHYLAMINE
     Indication: Migraine
     Route: 065
  400. DICLOFENAC DIETHYLAMINE [Suspect]
     Active Substance: DICLOFENAC DIETHYLAMINE
     Route: 065
  401. ENDOCET [Suspect]
     Active Substance: ACETAMINOPHEN\OXYCODONE HYDROCHLORIDE
     Indication: Migraine
     Route: 048
  402. DULOXETINE [Suspect]
     Active Substance: DULOXETINE
     Indication: Migraine
     Route: 065
  403. DULOXETINE [Suspect]
     Active Substance: DULOXETINE
     Route: 065
  404. DULOXETINE [Suspect]
     Active Substance: DULOXETINE
     Route: 065
  405. DULOXETINE [Suspect]
     Active Substance: DULOXETINE
     Route: 065
  406. DULOXETINE [Suspect]
     Active Substance: DULOXETINE
     Route: 065
  407. DULOXETINE [Suspect]
     Active Substance: DULOXETINE
     Route: 065
  408. DULOXETINE [Suspect]
     Active Substance: DULOXETINE
     Route: 065
  409. DULOXETINE [Suspect]
     Active Substance: DULOXETINE
     Route: 065
  410. DULOXETINE [Suspect]
     Active Substance: DULOXETINE
     Route: 065
  411. DULOXETINE [Suspect]
     Active Substance: DULOXETINE
     Route: 065
  412. DULOXETINE [Suspect]
     Active Substance: DULOXETINE
     Route: 065
  413. DULOXETINE [Suspect]
     Active Substance: DULOXETINE
     Route: 065
  414. DULOXETINE [Suspect]
     Active Substance: DULOXETINE
     Route: 065
  415. DULOXETINE [Suspect]
     Active Substance: DULOXETINE
     Route: 065
  416. DULOXETINE [Suspect]
     Active Substance: DULOXETINE
     Route: 065
  417. DULOXETINE [Suspect]
     Active Substance: DULOXETINE
     Route: 065
  418. DULOXETINE [Suspect]
     Active Substance: DULOXETINE
     Route: 065
  419. DULOXETINE [Suspect]
     Active Substance: DULOXETINE
     Route: 065
  420. DULOXETINE [Suspect]
     Active Substance: DULOXETINE
     Route: 065
  421. DULOXETINE [Suspect]
     Active Substance: DULOXETINE
     Route: 065
  422. DULOXETINE [Suspect]
     Active Substance: DULOXETINE
     Route: 065
  423. DULOXETINE [Suspect]
     Active Substance: DULOXETINE
     Route: 065
  424. DULOXETINE [Suspect]
     Active Substance: DULOXETINE
     Route: 065
  425. DULOXETINE [Suspect]
     Active Substance: DULOXETINE
     Route: 065
  426. DULOXETINE [Suspect]
     Active Substance: DULOXETINE
     Route: 065
  427. DULOXETINE [Suspect]
     Active Substance: DULOXETINE
     Route: 065
  428. DULOXETINE [Suspect]
     Active Substance: DULOXETINE
     Route: 065
  429. DULOXETINE [Suspect]
     Active Substance: DULOXETINE
     Route: 065
  430. DULOXETINE [Suspect]
     Active Substance: DULOXETINE
     Route: 065
  431. DULOXETINE [Suspect]
     Active Substance: DULOXETINE
     Route: 065
  432. DULOXETINE [Suspect]
     Active Substance: DULOXETINE
     Route: 065
  433. DULOXETINE [Suspect]
     Active Substance: DULOXETINE
     Route: 065
  434. DULOXETINE [Suspect]
     Active Substance: DULOXETINE
     Route: 065
  435. DULOXETINE [Suspect]
     Active Substance: DULOXETINE
     Route: 065
  436. DULOXETINE [Suspect]
     Active Substance: DULOXETINE
     Route: 065
  437. CODEINE PHOSPHATE [Suspect]
     Active Substance: CODEINE PHOSPHATE
     Indication: Migraine
     Route: 065
  438. CODEINE PHOSPHATE [Suspect]
     Active Substance: CODEINE PHOSPHATE
     Route: 048
  439. CODEINE PHOSPHATE [Suspect]
     Active Substance: CODEINE PHOSPHATE
     Route: 065
  440. CODEINE PHOSPHATE [Suspect]
     Active Substance: CODEINE PHOSPHATE
     Route: 065
  441. CODEINE PHOSPHATE [Suspect]
     Active Substance: CODEINE PHOSPHATE
     Route: 065
  442. CODEINE PHOSPHATE [Suspect]
     Active Substance: CODEINE PHOSPHATE
     Route: 065
  443. CODEINE PHOSPHATE [Suspect]
     Active Substance: CODEINE PHOSPHATE
     Route: 065
  444. CODEINE PHOSPHATE [Suspect]
     Active Substance: CODEINE PHOSPHATE
     Route: 065
  445. CODEINE PHOSPHATE [Suspect]
     Active Substance: CODEINE PHOSPHATE
     Route: 065
  446. CODEINE PHOSPHATE [Suspect]
     Active Substance: CODEINE PHOSPHATE
     Route: 065
  447. CODEINE PHOSPHATE [Suspect]
     Active Substance: CODEINE PHOSPHATE
     Route: 065
  448. CODEINE PHOSPHATE [Suspect]
     Active Substance: CODEINE PHOSPHATE
     Route: 065
  449. CODEINE PHOSPHATE [Suspect]
     Active Substance: CODEINE PHOSPHATE
     Route: 065
  450. CODEINE PHOSPHATE [Suspect]
     Active Substance: CODEINE PHOSPHATE
     Route: 065
  451. CODEINE PHOSPHATE [Suspect]
     Active Substance: CODEINE PHOSPHATE
     Route: 065
  452. CODEINE PHOSPHATE [Suspect]
     Active Substance: CODEINE PHOSPHATE
     Route: 065
  453. CODEINE PHOSPHATE [Suspect]
     Active Substance: CODEINE PHOSPHATE
     Route: 065
  454. CODEINE PHOSPHATE [Suspect]
     Active Substance: CODEINE PHOSPHATE
     Route: 065
  455. CODEINE PHOSPHATE [Suspect]
     Active Substance: CODEINE PHOSPHATE
     Route: 065
  456. CODEINE PHOSPHATE [Suspect]
     Active Substance: CODEINE PHOSPHATE
     Route: 065
  457. CODEINE PHOSPHATE [Suspect]
     Active Substance: CODEINE PHOSPHATE
     Route: 065
  458. CODEINE PHOSPHATE [Suspect]
     Active Substance: CODEINE PHOSPHATE
     Route: 065
  459. CODEINE PHOSPHATE [Suspect]
     Active Substance: CODEINE PHOSPHATE
     Route: 065
  460. CODEINE PHOSPHATE [Suspect]
     Active Substance: CODEINE PHOSPHATE
     Route: 065
  461. CODEINE PHOSPHATE [Suspect]
     Active Substance: CODEINE PHOSPHATE
     Route: 065
  462. CODEINE PHOSPHATE [Suspect]
     Active Substance: CODEINE PHOSPHATE
     Route: 065
  463. CODEINE PHOSPHATE [Suspect]
     Active Substance: CODEINE PHOSPHATE
     Route: 065
  464. CODEINE PHOSPHATE [Suspect]
     Active Substance: CODEINE PHOSPHATE
     Route: 065
  465. CODEINE PHOSPHATE [Suspect]
     Active Substance: CODEINE PHOSPHATE
     Route: 065
  466. CODEINE PHOSPHATE [Suspect]
     Active Substance: CODEINE PHOSPHATE
     Route: 065
  467. CODEINE PHOSPHATE [Suspect]
     Active Substance: CODEINE PHOSPHATE
     Route: 065
  468. CODEINE PHOSPHATE [Suspect]
     Active Substance: CODEINE PHOSPHATE
     Route: 065
  469. DULOXETINE [Suspect]
     Active Substance: DULOXETINE
     Indication: Migraine
     Route: 065
  470. DULOXETINE [Suspect]
     Active Substance: DULOXETINE
     Route: 065
  471. CODEINE SULFATE [Suspect]
     Active Substance: CODEINE SULFATE
     Indication: Migraine
     Dosage: UNK (EXTENDED-RELEASE)
     Route: 048
  472. CODEINE SULFATE [Suspect]
     Active Substance: CODEINE SULFATE
     Route: 048
  473. PROPRANOLOL HYDROCHLORIDE [Suspect]
     Active Substance: PROPRANOLOL HYDROCHLORIDE
     Indication: Migraine
     Route: 065
  474. PROPRANOLOL HYDROCHLORIDE [Suspect]
     Active Substance: PROPRANOLOL HYDROCHLORIDE
     Route: 065
  475. PROPRANOLOL HYDROCHLORIDE [Suspect]
     Active Substance: PROPRANOLOL HYDROCHLORIDE
     Route: 065
  476. OXYCODONE HYDROCHLORIDE [Suspect]
     Active Substance: OXYCODONE HYDROCHLORIDE
     Indication: Migraine
     Route: 048
  477. CELECOXIB [Suspect]
     Active Substance: CELECOXIB
     Indication: Product used for unknown indication
     Route: 030
  478. TRAMADOL HYDROCHLORIDE [Suspect]
     Active Substance: TRAMADOL HYDROCHLORIDE
     Indication: Migraine
     Route: 065
  479. HYDROMORPHONE HYDROCHLORIDE [Suspect]
     Active Substance: HYDROMORPHONE HYDROCHLORIDE
     Indication: Product used for unknown indication
     Route: 065
  480. KETAMINE HYDROCHLORIDE [Suspect]
     Active Substance: KETAMINE HYDROCHLORIDE
     Indication: Product used for unknown indication
     Route: 065
  481. NORTRIPTYLINE HYDROCHLORIDE [Suspect]
     Active Substance: NORTRIPTYLINE HYDROCHLORIDE
     Indication: Product used for unknown indication
     Route: 030
  482. ACETAMINOPHEN\TRAMADOL HYDROCHLORIDE [Suspect]
     Active Substance: ACETAMINOPHEN\TRAMADOL HYDROCHLORIDE
     Indication: Migraine
     Route: 048
  483. ACETAMINOPHEN\TRAMADOL HYDROCHLORIDE [Suspect]
     Active Substance: ACETAMINOPHEN\TRAMADOL HYDROCHLORIDE
     Route: 065
  484. ACETAMINOPHEN\TRAMADOL HYDROCHLORIDE [Suspect]
     Active Substance: ACETAMINOPHEN\TRAMADOL HYDROCHLORIDE
     Route: 065
  485. ESOMEPRAZOLE MAGNESIUM\NAPROXEN [Suspect]
     Active Substance: ESOMEPRAZOLE MAGNESIUM\NAPROXEN
     Indication: Product used for unknown indication
     Route: 048
  486. ESOMEPRAZOLE MAGNESIUM\NAPROXEN [Suspect]
     Active Substance: ESOMEPRAZOLE MAGNESIUM\NAPROXEN
     Route: 048
  487. ESOMEPRAZOLE MAGNESIUM\NAPROXEN [Suspect]
     Active Substance: ESOMEPRAZOLE MAGNESIUM\NAPROXEN
     Route: 048
  488. ESOMEPRAZOLE MAGNESIUM\NAPROXEN [Suspect]
     Active Substance: ESOMEPRAZOLE MAGNESIUM\NAPROXEN
     Route: 048
  489. ESOMEPRAZOLE MAGNESIUM\NAPROXEN [Suspect]
     Active Substance: ESOMEPRAZOLE MAGNESIUM\NAPROXEN
     Route: 048
  490. ESOMEPRAZOLE MAGNESIUM\NAPROXEN [Suspect]
     Active Substance: ESOMEPRAZOLE MAGNESIUM\NAPROXEN
     Route: 048
  491. ESOMEPRAZOLE MAGNESIUM\NAPROXEN [Suspect]
     Active Substance: ESOMEPRAZOLE MAGNESIUM\NAPROXEN
     Route: 048
  492. ESOMEPRAZOLE MAGNESIUM\NAPROXEN [Suspect]
     Active Substance: ESOMEPRAZOLE MAGNESIUM\NAPROXEN
     Route: 048
  493. ESOMEPRAZOLE MAGNESIUM\NAPROXEN [Suspect]
     Active Substance: ESOMEPRAZOLE MAGNESIUM\NAPROXEN
     Route: 048
  494. ESOMEPRAZOLE MAGNESIUM\NAPROXEN [Suspect]
     Active Substance: ESOMEPRAZOLE MAGNESIUM\NAPROXEN
     Route: 048
  495. ESOMEPRAZOLE MAGNESIUM\NAPROXEN [Suspect]
     Active Substance: ESOMEPRAZOLE MAGNESIUM\NAPROXEN
     Route: 048
  496. ESOMEPRAZOLE MAGNESIUM\NAPROXEN [Suspect]
     Active Substance: ESOMEPRAZOLE MAGNESIUM\NAPROXEN
     Route: 048
  497. ESOMEPRAZOLE MAGNESIUM\NAPROXEN [Suspect]
     Active Substance: ESOMEPRAZOLE MAGNESIUM\NAPROXEN
     Route: 048
  498. ESOMEPRAZOLE MAGNESIUM\NAPROXEN [Suspect]
     Active Substance: ESOMEPRAZOLE MAGNESIUM\NAPROXEN
     Route: 048
  499. ESOMEPRAZOLE MAGNESIUM\NAPROXEN [Suspect]
     Active Substance: ESOMEPRAZOLE MAGNESIUM\NAPROXEN
     Route: 048
  500. ESOMEPRAZOLE MAGNESIUM\NAPROXEN [Suspect]
     Active Substance: ESOMEPRAZOLE MAGNESIUM\NAPROXEN
     Route: 048
  501. ESOMEPRAZOLE MAGNESIUM\NAPROXEN [Suspect]
     Active Substance: ESOMEPRAZOLE MAGNESIUM\NAPROXEN
     Route: 048
  502. ESOMEPRAZOLE MAGNESIUM\NAPROXEN [Suspect]
     Active Substance: ESOMEPRAZOLE MAGNESIUM\NAPROXEN
     Route: 048
  503. ESOMEPRAZOLE MAGNESIUM\NAPROXEN [Suspect]
     Active Substance: ESOMEPRAZOLE MAGNESIUM\NAPROXEN
     Route: 048
  504. ESOMEPRAZOLE MAGNESIUM\NAPROXEN [Suspect]
     Active Substance: ESOMEPRAZOLE MAGNESIUM\NAPROXEN
     Route: 048
  505. ESOMEPRAZOLE MAGNESIUM\NAPROXEN [Suspect]
     Active Substance: ESOMEPRAZOLE MAGNESIUM\NAPROXEN
     Route: 048
  506. ESOMEPRAZOLE MAGNESIUM\NAPROXEN [Suspect]
     Active Substance: ESOMEPRAZOLE MAGNESIUM\NAPROXEN
     Route: 048
  507. ESOMEPRAZOLE MAGNESIUM\NAPROXEN [Suspect]
     Active Substance: ESOMEPRAZOLE MAGNESIUM\NAPROXEN
     Route: 048
  508. ESOMEPRAZOLE MAGNESIUM\NAPROXEN [Suspect]
     Active Substance: ESOMEPRAZOLE MAGNESIUM\NAPROXEN
     Route: 048
  509. ESOMEPRAZOLE MAGNESIUM\NAPROXEN [Suspect]
     Active Substance: ESOMEPRAZOLE MAGNESIUM\NAPROXEN
     Route: 048
  510. ESOMEPRAZOLE MAGNESIUM\NAPROXEN [Suspect]
     Active Substance: ESOMEPRAZOLE MAGNESIUM\NAPROXEN
     Route: 048
  511. ESOMEPRAZOLE MAGNESIUM\NAPROXEN [Suspect]
     Active Substance: ESOMEPRAZOLE MAGNESIUM\NAPROXEN
     Route: 048
  512. ESOMEPRAZOLE MAGNESIUM\NAPROXEN [Suspect]
     Active Substance: ESOMEPRAZOLE MAGNESIUM\NAPROXEN
     Route: 048
  513. ESOMEPRAZOLE MAGNESIUM\NAPROXEN [Suspect]
     Active Substance: ESOMEPRAZOLE MAGNESIUM\NAPROXEN
     Route: 048
  514. ESOMEPRAZOLE MAGNESIUM\NAPROXEN [Suspect]
     Active Substance: ESOMEPRAZOLE MAGNESIUM\NAPROXEN
     Route: 048
  515. ESOMEPRAZOLE MAGNESIUM\NAPROXEN [Suspect]
     Active Substance: ESOMEPRAZOLE MAGNESIUM\NAPROXEN
     Route: 065
  516. ESOMEPRAZOLE MAGNESIUM\NAPROXEN [Suspect]
     Active Substance: ESOMEPRAZOLE MAGNESIUM\NAPROXEN
     Route: 065
  517. ESOMEPRAZOLE MAGNESIUM\NAPROXEN [Suspect]
     Active Substance: ESOMEPRAZOLE MAGNESIUM\NAPROXEN
     Route: 065
  518. ESOMEPRAZOLE MAGNESIUM\NAPROXEN [Suspect]
     Active Substance: ESOMEPRAZOLE MAGNESIUM\NAPROXEN
     Route: 065
  519. ESOMEPRAZOLE MAGNESIUM\NAPROXEN [Suspect]
     Active Substance: ESOMEPRAZOLE MAGNESIUM\NAPROXEN
     Route: 065
  520. ESOMEPRAZOLE MAGNESIUM\NAPROXEN [Suspect]
     Active Substance: ESOMEPRAZOLE MAGNESIUM\NAPROXEN
     Route: 065
  521. ESOMEPRAZOLE MAGNESIUM\NAPROXEN [Suspect]
     Active Substance: ESOMEPRAZOLE MAGNESIUM\NAPROXEN
     Route: 048
  522. ESOMEPRAZOLE MAGNESIUM\NAPROXEN [Suspect]
     Active Substance: ESOMEPRAZOLE MAGNESIUM\NAPROXEN
     Route: 065
  523. ESOMEPRAZOLE MAGNESIUM\NAPROXEN [Suspect]
     Active Substance: ESOMEPRAZOLE MAGNESIUM\NAPROXEN
     Route: 065
  524. ESOMEPRAZOLE MAGNESIUM\NAPROXEN [Suspect]
     Active Substance: ESOMEPRAZOLE MAGNESIUM\NAPROXEN
     Route: 065
  525. ESOMEPRAZOLE MAGNESIUM\NAPROXEN [Suspect]
     Active Substance: ESOMEPRAZOLE MAGNESIUM\NAPROXEN
     Route: 065
  526. ESOMEPRAZOLE MAGNESIUM\NAPROXEN [Suspect]
     Active Substance: ESOMEPRAZOLE MAGNESIUM\NAPROXEN
     Route: 065
  527. ESOMEPRAZOLE MAGNESIUM\NAPROXEN [Suspect]
     Active Substance: ESOMEPRAZOLE MAGNESIUM\NAPROXEN
     Route: 065
  528. ESOMEPRAZOLE MAGNESIUM\NAPROXEN [Suspect]
     Active Substance: ESOMEPRAZOLE MAGNESIUM\NAPROXEN
     Route: 065
  529. ESOMEPRAZOLE MAGNESIUM\NAPROXEN [Suspect]
     Active Substance: ESOMEPRAZOLE MAGNESIUM\NAPROXEN
     Route: 065
  530. ESOMEPRAZOLE MAGNESIUM\NAPROXEN [Suspect]
     Active Substance: ESOMEPRAZOLE MAGNESIUM\NAPROXEN
     Route: 065
  531. ESOMEPRAZOLE MAGNESIUM\NAPROXEN [Suspect]
     Active Substance: ESOMEPRAZOLE MAGNESIUM\NAPROXEN
     Route: 065
  532. ESOMEPRAZOLE MAGNESIUM\NAPROXEN [Suspect]
     Active Substance: ESOMEPRAZOLE MAGNESIUM\NAPROXEN
     Route: 065
  533. ESOMEPRAZOLE MAGNESIUM\NAPROXEN [Suspect]
     Active Substance: ESOMEPRAZOLE MAGNESIUM\NAPROXEN
     Route: 065

REACTIONS (8)
  - Nephrolithiasis [Unknown]
  - Hyperhidrosis [Unknown]
  - Sedation [Unknown]
  - Off label use [Unknown]
  - Drug ineffective [Unknown]
  - Nausea [Unknown]
  - Nightmare [Unknown]
  - Product use in unapproved indication [Unknown]
